FAERS Safety Report 9095733 (Version 1)
Quarter: 2013Q1

REPORT INFORMATION
  Report Type: Spontaneous
  Country: TR (occurrence: None)
  Receive Date: 20130124
  Receipt Date: 20130124
  Transmission Date: 20140127
  Serious: Yes (Hospitalization)
  Sender: FDA-Public Use
  Company Number: 2013-00739

PATIENT
  Age: 14 Year
  Sex: Male

DRUGS (3)
  1. EPIRUBICIN HYDROCHLORIDE [Suspect]
     Indication: OSTEOSARCOMA
  2. CISPLATIN (CISPLATIN) (5 MILLIGRAM) (CISPLATIN) [Suspect]
  3. IFOSFAMIDE [Suspect]

REACTIONS (3)
  - Pneumothorax [None]
  - Malignant neoplasm progression [None]
  - Osteosarcoma [None]
